FAERS Safety Report 7480309-8 (Version None)
Quarter: 2011Q2

REPORT INFORMATION
  Report Type: 
  Country: None (occurrence: None)
  Receive Date: 20110504
  Receipt Date: 20110420
  Transmission Date: 20111010
  Serious: Yes (Hospitalization)
  Sender: FDA-Public Use
  Company Number: 031031

PATIENT
  Age: 38 Year
  Sex: Female

DRUGS (1)
  1. CIMZIA [Suspect]
     Dosage: (400 MG 1X/MONTH SUBCUTANEOUS)
     Route: 058

REACTIONS (1)
  - SYSTEMIC LUPUS ERYTHEMATOSUS [None]
